FAERS Safety Report 8608252-9 (Version None)
Quarter: 2012Q3

REPORT INFORMATION
  Report Type: 
  Country: None (occurrence: None)
  Receive Date: 20120809
  Receipt Date: 20120809
  Transmission Date: 20120928
  Serious: Yes (Hospitalization)
  Sender: FDA-Public Use
  Company Number: None

PATIENT
  Sex: Female
  Weight: 103.4 kg

DRUGS (4)
  1. AMITRIPTYLINE HYDROCHLORIDE [Concomitant]
  2. PRILOSEC [Concomitant]
  3. PANCREAZE (LIPASE-PROTEASE-OMYLASE) [Concomitant]
  4. PIOGLITAZONE [Suspect]
     Indication: PANCREATITIS
     Dosage: 30MG DAILY ORAL
     Route: 048
     Dates: start: 20120117

REACTIONS (1)
  - PANCREATITIS [None]
